FAERS Safety Report 9914251 (Version 1)
Quarter: 2014Q1

REPORT INFORMATION
  Report Type: Spontaneous
  Country: US (occurrence: US)
  Receive Date: 20140220
  Receipt Date: 20140220
  Transmission Date: 20141002
  Serious: Yes (Other)
  Sender: FDA-Public Use
  Company Number: US-ACTAVIS-2014-02564

PATIENT
  Age: 80 Year
  Sex: Female
  Weight: 56 kg

DRUGS (1)
  1. METRONIDAZOLE (GALDERMA LABORATORIES) [Suspect]
     Indication: ROSACEA
     Dosage: UNK UNK, SINGLE
     Route: 061
     Dates: start: 20140203, end: 20140203

REACTIONS (2)
  - Haemorrhage [Recovering/Resolving]
  - Erythema [Recovering/Resolving]
